FAERS Safety Report 5191869-4 (Version None)
Quarter: 2006Q4

REPORT INFORMATION
  Report Type: 
  Country: None (occurrence: None)
  Receive Date: 20061220
  Receipt Date: 20061207
  Transmission Date: 20070319
  Serious: Yes (Hospitalization)
  Sender: FDA-Public Use
  Company Number: 2006-03023

PATIENT
  Age: 79 Year
  Sex: Female
  Weight: 69.4 kg

DRUGS (8)
  1. VELCADE [Suspect]
     Indication: MULTIPLE MYELOMA
     Dosage: 1.70 MG; 2.30 MG, IV BOLUS
     Dates: start: 20030527, end: 20030808
  2. VELCADE [Suspect]
     Indication: MULTIPLE MYELOMA
     Dosage: 1.70 MG; 2.30 MG, IV BOLUS
     Dates: start: 20050111, end: 20051001
  3. ZOMETA [Concomitant]
  4. ARANSEP (DARBEPOETIN ALFA) [Concomitant]
  5. DARVOCET-N 100 [Concomitant]
  6. ESTRATEST [Concomitant]
  7. MULTIVITAMINS(ERGOCALCIFEROL, ASCORBIC ACID, PANTHENOL, NICOTINAMIDE, [Concomitant]
  8. ASPIRIN (ACETYLSACLCYLIC ACID) [Concomitant]

REACTIONS (18)
  - ASTHENIA [None]
  - AUTONOMIC NEUROPATHY [None]
  - BLOOD CALCIUM INCREASED [None]
  - BLOOD PRESSURE INCREASED [None]
  - DECREASED APPETITE [None]
  - DIARRHOEA [None]
  - DRY SKIN [None]
  - FATIGUE [None]
  - HERPES ZOSTER [None]
  - HYPOVOLAEMIA [None]
  - MONOCLONAL IMMUNOGLOBULIN PRESENT [None]
  - MUSCULAR WEAKNESS [None]
  - PERIPHERAL SENSORY NEUROPATHY [None]
  - PROTEIN TOTAL INCREASED [None]
  - PRURITUS [None]
  - THERAPY NON-RESPONDER [None]
  - VITAMIN B6 INCREASED [None]
  - WEIGHT DECREASED [None]
